FAERS Safety Report 23529561 (Version 1)
Quarter: 2024Q1

REPORT INFORMATION
  Report Type: Spontaneous
  Country: US (occurrence: US)
  Receive Date: 20240216
  Receipt Date: 20240216
  Transmission Date: 20240410
  Serious: Yes (Other)
  Sender: FDA-Public Use
  Company Number: US-BRISTOL-MYERS SQUIBB COMPANY-2024-025262

PATIENT
  Age: 59 Year
  Sex: Female
  Weight: 131.54 kg

DRUGS (1)
  1. LENALIDOMIDE [Suspect]
     Active Substance: LENALIDOMIDE
     Indication: Plasma cell myeloma
     Dosage: D 1-14 Q 28 DAYS
     Route: 048
     Dates: start: 20231209

REACTIONS (2)
  - Malignant melanoma [Unknown]
  - Off label use [Unknown]
